FAERS Safety Report 4992427-4 (Version None)
Quarter: 2006Q2

REPORT INFORMATION
  Report Type: 
  Country: None (occurrence: None)
  Receive Date: 20060502
  Receipt Date: 20060419
  Transmission Date: 20061013
  Serious: Yes (Death)
  Sender: FDA-Public Use
  Company Number: HQWYE884820APR06

PATIENT
  Age: 31 Year
  Sex: Female

DRUGS (3)
  1. MYLOTARG [Suspect]
     Indication: ACUTE MYELOID LEUKAEMIA
     Dosage: A SINGLE 9 MG/^2 DOSE, INTRAVENOUS DRIP
     Dates: start: 20051222, end: 20051229
  2. CLINDAMYCIN HCL [Concomitant]
  3. TIENAM          (CILASTATIN/IMIPENEM) [Concomitant]

REACTIONS (8)
  - DISEASE PROGRESSION [None]
  - GASTROINTESTINAL HAEMORRHAGE [None]
  - GLUCOSE URINE PRESENT [None]
  - HYPERGLYCAEMIA [None]
  - HYPERTENSION [None]
  - HYPOKALAEMIA [None]
  - PNEUMONIA [None]
  - PROTEIN URINE PRESENT [None]
